FAERS Safety Report 15854047 (Version 1)
Quarter: 2019Q1

REPORT INFORMATION
  Report Type: Spontaneous
  Country: US (occurrence: US)
  Receive Date: 20190122
  Receipt Date: 20190122
  Transmission Date: 20190417
  Serious: No
  Sender: FDA-Public Use
  Company Number: US-PFIZER INC-2019027775

PATIENT
  Age: 54 Year
  Sex: Male

DRUGS (7)
  1. ASA [Suspect]
     Active Substance: ASPIRIN
     Dosage: 8 MG, UNK
  2. LISINOPRIL. [Suspect]
     Active Substance: LISINOPRIL
     Dosage: 10 MG, DAILY
  3. LEXAPRO [Suspect]
     Active Substance: ESCITALOPRAM OXALATE
     Dosage: 10 MG, 1X/DAY (EVERY NIGHT AT BEDTIME)
  4. SIMVASTATIN. [Suspect]
     Active Substance: SIMVASTATIN
     Dosage: 20 MG, DAILY
  5. AVODART [Suspect]
     Active Substance: DUTASTERIDE
     Dosage: UNK, DAILY (0.5 DAILY)
  6. AMLODIPINE BESILATE [Suspect]
     Active Substance: AMLODIPINE BESYLATE
     Dosage: 5 MG, 1X/DAY (EVERY NIGHT AT BEDTIME)
  7. TAMSULOSIN [Suspect]
     Active Substance: TAMSULOSIN
     Dosage: UNK, DAILY (0.4 DAILY)

REACTIONS (1)
  - Drug hypersensitivity [Unknown]
